FAERS Safety Report 23960675 (Version 1)
Quarter: 2024Q2

REPORT INFORMATION
  Report Type: Spontaneous
  Country: CA (occurrence: CA)
  Receive Date: 20240611
  Receipt Date: 20240611
  Transmission Date: 20240715
  Serious: Yes (Other)
  Sender: FDA-Public Use
  Company Number: CA-BAYER-2024A034419

PATIENT
  Age: 28 Year
  Sex: Male

DRUGS (8)
  1. NAPROXEN SODIUM [Suspect]
     Active Substance: NAPROXEN\NAPROXEN SODIUM
     Indication: Pain in extremity
     Dosage: UNK
     Route: 065
  2. NAPROXEN SODIUM [Suspect]
     Active Substance: NAPROXEN\NAPROXEN SODIUM
     Indication: Pain
  3. TRAMETINIB [Suspect]
     Active Substance: TRAMETINIB
     Indication: Glomus tumour
     Dosage: 0.5 MG, QD
     Route: 048
  4. TRAMETINIB [Suspect]
     Active Substance: TRAMETINIB
     Indication: Glomus tumour
     Dosage: 2 MG, QD
     Route: 048
  5. GABAPENTIN [Suspect]
     Active Substance: GABAPENTIN
     Indication: Pain in extremity
     Dosage: UNK
     Route: 065
  6. GABAPENTIN [Suspect]
     Active Substance: GABAPENTIN
     Indication: Pain
  7. KETAMINE [Suspect]
     Active Substance: KETAMINE
     Indication: Pain in extremity
     Dosage: UNK
     Route: 061
  8. KETAMINE [Suspect]
     Active Substance: KETAMINE
     Indication: Pain

REACTIONS (3)
  - Drug ineffective [Recovering/Resolving]
  - Dermatitis acneiform [Recovering/Resolving]
  - Pain in extremity [Recovering/Resolving]
